FAERS Safety Report 9550892 (Version 1)
Quarter: 2013Q3

REPORT INFORMATION
  Report Type: Spontaneous
  Country: US (occurrence: US)
  Receive Date: 20130924
  Receipt Date: 20130924
  Transmission Date: 20140515
  Serious: No
  Sender: FDA-Public Use
  Company Number: US-SANOFI-AVENTIS-2013SA041159

PATIENT
  Age: 71 Year
  Sex: Male
  Weight: 47 kg

DRUGS (3)
  1. AUBAGIO [Suspect]
     Indication: MULTIPLE SCLEROSIS
     Route: 048
     Dates: start: 20130308
  2. GLIMEPIRIDE [Concomitant]
     Indication: DIABETES MELLITUS
     Dates: start: 2010
  3. COUMADIN [Concomitant]

REACTIONS (2)
  - Alopecia [Not Recovered/Not Resolved]
  - Headache [Recovering/Resolving]
